FAERS Safety Report 9651886 (Version 2)
Quarter: 2013Q4

REPORT INFORMATION
  Report Type: Spontaneous
  Country: JP (occurrence: JP)
  Receive Date: 20131029
  Receipt Date: 20131029
  Transmission Date: 20140711
  Serious: Yes (Life-Threatening, Hospitalization, Other)
  Sender: FDA-Public Use
  Company Number: JP-TAKEDA-0237322

PATIENT
  Sex: 0

DRUGS (8)
  1. TACHOSIL [Suspect]
     Indication: HAEMOSTASIS
     Dosage: 3 SHEETS /1DAY
     Dates: start: 20130308, end: 20130308
  2. TACHOSIL [Suspect]
     Indication: PROPHYLAXIS
  3. CEFAPICOL [Concomitant]
     Indication: PROPHYLAXIS
     Dosage: 1 G, BID
     Route: 042
     Dates: start: 20130308, end: 20130309
  4. PARIET [Concomitant]
     Indication: HEPATIC CANCER
     Dosage: 10 MG, QD
     Route: 048
     Dates: start: 201303
  5. LETRAC [Concomitant]
     Indication: HEPATIC CANCER
     Dosage: 10 MG, TID
     Route: 048
     Dates: start: 20130310, end: 20130320
  6. MUCOSTA [Concomitant]
     Indication: HEPATIC CANCER
     Dosage: 100 MG, TID
     Route: 048
     Dates: start: 20130310, end: 20130320
  7. NEOPHYLLIN                         /00003701/ [Concomitant]
     Indication: EMPHYSEMA
     Dosage: 250 MG, QD
     Dates: start: 20130313, end: 20130313
  8. GAMMA GLOBULIN [Concomitant]

REACTIONS (4)
  - Abdominal abscess [Recovering/Resolving]
  - Acute respiratory distress syndrome [Recovered/Resolved]
  - Post procedural bile leak [Recovering/Resolving]
  - Delirium [Recovered/Resolved]
